FAERS Safety Report 9848028 (Version 1)
Quarter: 2014Q1

REPORT INFORMATION
  Report Type: Spontaneous
  Country: US (occurrence: None)
  Receive Date: 20140117
  Receipt Date: 20140117
  Transmission Date: 20141002
  Serious: Yes (Other)
  Sender: FDA-Public Use
  Company Number: B0958782A

PATIENT
  Age: 45 Year
  Sex: Female

DRUGS (6)
  1. DIPHENHYDRAMINE (DIPHENHYDRAMINE) [Suspect]
     Route: 048
  2. BUPROPION HYDROCHLORIDE [Suspect]
     Route: 048
  3. PAROXETINE HYDROCHLORIDE [Suspect]
     Route: 048
  4. PSEUDOEPHEDRINE (PSEUDOEPHEDRINE) [Suspect]
     Route: 048
  5. HYDROCODONE (HYDROCODONE) [Suspect]
  6. ALPRAZOLAM (ALPRAZOLAM) [Suspect]

REACTIONS (2)
  - Completed suicide [None]
  - Exposure via ingestion [None]
